FAERS Safety Report 17974705 (Version 2)
Quarter: 2020Q3

REPORT INFORMATION
  Report Type: Spontaneous
  Country: US (occurrence: US)
  Receive Date: 20200702
  Receipt Date: 20200803
  Transmission Date: 20201103
  Serious: Yes (Other)
  Sender: FDA-Public Use
  Company Number: US-AKORN PHARMACEUTICALS-2020AKN00846

PATIENT
  Sex: Male

DRUGS (3)
  1. MYORISAN [Suspect]
     Active Substance: ISOTRETINOIN
     Dosage: 20 MG, 2X/DAY
     Dates: start: 20191015, end: 20200617
  2. MYORISAN [Suspect]
     Active Substance: ISOTRETINOIN
     Dosage: UNK
     Dates: start: 20191105, end: 20200617
  3. MYORISAN [Suspect]
     Active Substance: ISOTRETINOIN
     Dosage: UNK
     Dates: start: 20200114, end: 2020

REACTIONS (5)
  - Product dose omission issue [Recovered/Resolved]
  - Infectious mononucleosis [Unknown]
  - White blood cell count decreased [Unknown]
  - Self-injurious ideation [Unknown]
  - Mood altered [Unknown]
